FAERS Safety Report 16384623 (Version 1)
Quarter: 2019Q2

REPORT INFORMATION
  Report Type: Spontaneous
  Country: JP (occurrence: JP)
  Receive Date: 20190603
  Receipt Date: 20190603
  Transmission Date: 20190711
  Serious: Yes (Hospitalization, Other)
  Sender: FDA-Public Use
  Company Number: JP-JNJFOC-20190542776

PATIENT
  Age: 86 Year
  Sex: Female

DRUGS (1)
  1. XARELTO [Suspect]
     Active Substance: RIVAROXABAN
     Indication: ATRIAL FIBRILLATION
     Route: 048

REACTIONS (6)
  - Atrial fibrillation [Unknown]
  - Cardiac hypertrophy [Unknown]
  - Off label use [Unknown]
  - Cardiac failure [Unknown]
  - Ischaemic cerebral infarction [Unknown]
  - Arteriosclerosis [Unknown]

NARRATIVE: CASE EVENT DATE: 20190516
